FAERS Safety Report 5423554-5 (Version None)
Quarter: 2007Q3

REPORT INFORMATION
  Report Type: 
  Country: None (occurrence: None)
  Receive Date: 20070823
  Receipt Date: 20070314
  Transmission Date: 20080115
  Serious: Yes (Hospitalization)
  Sender: FDA-Public Use
  Company Number: US-ASTRAZENECA-2007UW00424

PATIENT
  Age: 80 Year
  Sex: Female
  Weight: 81.6 kg

DRUGS (7)
  1. IRESSA [Suspect]
     Indication: LUNG NEOPLASM MALIGNANT
     Route: 048
     Dates: start: 20041001
  2. ALPRAZOLAM [Concomitant]
  3. LESCOL [Concomitant]
  4. TRIAMTERENE [Concomitant]
  5. LEVOTHYROXINE SODIUM [Concomitant]
  6. ATENOLOL [Concomitant]
  7. ALLOPURINOL [Concomitant]

REACTIONS (1)
  - DISEASE PROGRESSION [None]
